FAERS Safety Report 10181126 (Version 1)
Quarter: 2014Q2

REPORT INFORMATION
  Report Type: Spontaneous
  Country: US (occurrence: US)
  Receive Date: 20140519
  Receipt Date: 20140519
  Transmission Date: 20141212
  Serious: No
  Sender: FDA-Public Use
  Company Number: US-AMGEN INC.-USASP2014025299

PATIENT
  Age: 80 Year
  Sex: Female

DRUGS (9)
  1. PROLIA [Suspect]
     Indication: OSTEOPOROSIS POSTMENOPAUSAL
     Dosage: UNK
     Route: 065
     Dates: start: 20140210
  2. FISH OIL                           /00492901/ [Concomitant]
  3. LISINOPRIL [Concomitant]
     Indication: HYPERTENSION
  4. GABAPENTIN [Concomitant]
     Dosage: 400 MG, 100 MG IN THE AM AND 300 MG AT HS,
  5. VITAMIN D3 [Concomitant]
     Dosage: 1000 MG, DAILY
  6. VITAMIN C                          /00008001/ [Concomitant]
     Dosage: 500 MG, DAILY
  7. VITAMIN B12                        /00056201/ [Concomitant]
     Dosage: 1000 MG,DAILY
  8. CALCIUM WITH VITAMIN D             /00944201/ [Concomitant]
     Dosage: 600 MG, BID
  9. METOPROLOL [Concomitant]
     Dosage: 50 MG- 1/2 DAILY

REACTIONS (3)
  - Fatigue [Unknown]
  - Epistaxis [Recovered/Resolved]
  - Headache [Unknown]
